FAERS Safety Report 26060018 (Version 1)
Quarter: 2025Q4

REPORT INFORMATION
  Report Type: Spontaneous
  Country: US (occurrence: US)
  Receive Date: 20251118
  Receipt Date: 20251118
  Transmission Date: 20260117
  Serious: No
  Sender: ABBVIE
  Company Number: US-ABBVIE-6550403

PATIENT
  Sex: Female

DRUGS (2)
  1. BOTOX COSMETIC [Suspect]
     Active Substance: ONABOTULINUMTOXINA
     Indication: Skin cosmetic procedure
     Dosage: TIME INTERVAL: AS NECESSARY: DOSE: 80 UNIT.
     Route: 065
  2. BOTOX COSMETIC [Suspect]
     Active Substance: ONABOTULINUMTOXINA
     Indication: Skin cosmetic procedure
     Dosage: TIME INTERVAL: AS NECESSARY: DOSE: 80 UNIT, REINJECTED.
     Route: 065

REACTIONS (6)
  - COVID-19 [Unknown]
  - Insomnia [Unknown]
  - Panic attack [Unknown]
  - Anxiety [Unknown]
  - Tremor [Unknown]
  - Drug ineffective [Not Recovered/Not Resolved]
